FAERS Safety Report 22126542 (Version 3)
Quarter: 2023Q2

REPORT INFORMATION
  Report Type: Spontaneous
  Country: US (occurrence: US)
  Receive Date: 20230322
  Receipt Date: 20230425
  Transmission Date: 20230721
  Serious: No
  Sender: FDA-Public Use
  Company Number: US-ALLERGAN-2305003US

PATIENT
  Sex: Female

DRUGS (3)
  1. QULIPTA [Suspect]
     Active Substance: ATOGEPANT
     Indication: Migraine
     Dosage: 2 DF
     Dates: start: 20230201
  2. UBRELVY [Suspect]
     Active Substance: UBROGEPANT
     Indication: Migraine
  3. combination of ASA, acetaminophen, caffeine [Concomitant]
     Indication: Product used for unknown indication

REACTIONS (3)
  - Extra dose administered [Unknown]
  - Drug ineffective [Unknown]
  - Therapeutic response shortened [Unknown]
